FAERS Safety Report 20258460 (Version 1)
Quarter: 2021Q4

REPORT INFORMATION
  Report Type: Spontaneous
  Country: IL (occurrence: IL)
  Receive Date: 20211230
  Receipt Date: 20211230
  Transmission Date: 20220303
  Serious: Yes (Other)
  Sender: FDA-Public Use
  Company Number: IL-BAYER-2021A273941

PATIENT
  Age: 46 Year
  Sex: Female

DRUGS (2)
  1. MIRENA [Suspect]
     Active Substance: LEVONORGESTREL
     Indication: Abnormal uterine bleeding
     Dosage: 20?G/DAY
     Route: 015
     Dates: start: 201511, end: 202006
  2. DIENOGEST\ESTRADIOL VALERATE [Suspect]
     Active Substance: DIENOGEST\ESTRADIOL VALERATE
     Indication: Abnormal uterine bleeding
     Dosage: UNK
     Route: 048
     Dates: start: 202003

REACTIONS (5)
  - Endometrial adenocarcinoma [Not Recovered/Not Resolved]
  - Genital haemorrhage [None]
  - Genital haemorrhage [None]
  - Coital bleeding [None]
  - Off label use [None]

NARRATIVE: CASE EVENT DATE: 20151101
